FAERS Safety Report 6215026-5 (Version None)
Quarter: 2009Q2

REPORT INFORMATION
  Report Type: 
  Country: None (occurrence: None)
  Receive Date: 20090604
  Receipt Date: 20081023
  Transmission Date: 20091009
  Serious: No
  Sender: FDA-Public Use
  Company Number: US-ASTRAZENECA-2008UW23684

PATIENT
  Age: 76 Year
  Sex: Male
  Weight: 88.5 kg

DRUGS (6)
  1. PRILOSEC [Suspect]
     Indication: ABDOMINAL DISCOMFORT
     Route: 048
  2. PRILOSEC [Suspect]
     Indication: HIATUS HERNIA
     Route: 048
  3. ASMANEX TWISTHALER [Concomitant]
  4. ANAPRIL [Concomitant]
  5. FLOMAX [Concomitant]
  6. LORAZEPAM [Concomitant]

REACTIONS (2)
  - CONSTIPATION [None]
  - KNEE ARTHROPLASTY [None]
